FAERS Safety Report 18151682 (Version 1)
Quarter: 2020Q3

REPORT INFORMATION
  Report Type: Spontaneous
  Country: US (occurrence: US)
  Receive Date: 20200814
  Receipt Date: 20200814
  Transmission Date: 20201103
  Serious: No
  Sender: FDA-Public Use
  Company Number: US-BAYER-2020-169653

PATIENT
  Sex: Female

DRUGS (2)
  1. CLARITIN LIQUI?GELS [Suspect]
     Active Substance: LORATADINE
     Indication: NASAL CONGESTION
     Dosage: 1 DF, QD WITH FOOD
     Route: 048
     Dates: start: 20200804
  2. CLARITIN LIQUI?GELS [Suspect]
     Active Substance: LORATADINE
     Indication: COUGH

REACTIONS (4)
  - Headache [None]
  - Product use in unapproved indication [Unknown]
  - Chest discomfort [None]
  - Off label use [Unknown]
